FAERS Safety Report 10367791 (Version 2)
Quarter: 2014Q3

REPORT INFORMATION
  Report Type: Report from Study
  Country: FR (occurrence: FR)
  Receive Date: 20140807
  Receipt Date: 20140807
  Transmission Date: 20150326
  Serious: Yes (Other)
  Sender: FDA-Public Use
  Company Number: FR-CELGENEUS-056-POMAL-14050349

PATIENT
  Sex: Male

DRUGS (5)
  1. IMNOVID [Suspect]
     Active Substance: POMALIDOMIDE
     Indication: AMYLOIDOSIS
     Dosage: 2 MILLIGRAM
     Route: 048
     Dates: start: 20140323
  2. IMNOVID [Suspect]
     Active Substance: POMALIDOMIDE
     Dosage: 1 MILLIGRAM
     Route: 048
  3. DEXAMETHASONE. [Concomitant]
     Active Substance: DEXAMETHASONE
     Indication: PRODUCT USED FOR UNKNOWN INDICATION
     Route: 065
  4. ASPIRINE [Concomitant]
     Active Substance: ASPIRIN
     Indication: THROMBOSIS PROPHYLAXIS
     Route: 065
  5. IMNOVID [Suspect]
     Active Substance: POMALIDOMIDE
     Indication: OFF LABEL USE
     Route: 048

REACTIONS (3)
  - Nephropathy toxic [Unknown]
  - Haematotoxicity [Unknown]
  - Thrombocytopenia [Unknown]
